FAERS Safety Report 21831896 (Version 1)
Quarter: 2023Q1

REPORT INFORMATION
  Report Type: Spontaneous
  Country: US (occurrence: US)
  Receive Date: 20230106
  Receipt Date: 20230106
  Transmission Date: 20230417
  Serious: No
  Sender: FDA-Public Use
  Company Number: US-BRISTOL-MYERS SQUIBB COMPANY-2023-002470

PATIENT
  Age: 76 Year
  Sex: Male
  Weight: 76 kg

DRUGS (22)
  1. REVLIMID [Suspect]
     Active Substance: LENALIDOMIDE
     Indication: Follicular lymphoma
     Dosage: 1 X 21/28DAYS
     Route: 048
     Dates: start: 20221019
  2. REVLIMID [Suspect]
     Active Substance: LENALIDOMIDE
     Dosage: 21/28 CYCLE
     Route: 048
     Dates: start: 20230105
  3. REVLIMID [Suspect]
     Active Substance: LENALIDOMIDE
     Route: 048
     Dates: start: 20221107, end: 20221202
  4. REVLIMID [Suspect]
     Active Substance: LENALIDOMIDE
     Route: 048
     Dates: start: 20221202, end: 20221205
  5. REVLIMID [Suspect]
     Active Substance: LENALIDOMIDE
     Route: 048
     Dates: start: 20221205, end: 20230105
  6. REVLIMID [Suspect]
     Active Substance: LENALIDOMIDE
     Route: 048
     Dates: start: 20221012, end: 20221017
  7. REVLIMID [Suspect]
     Active Substance: LENALIDOMIDE
     Route: 048
     Dates: start: 20221017, end: 20221107
  8. ACETAMINOPHEN [Concomitant]
     Active Substance: ACETAMINOPHEN
     Route: 048
     Dates: start: 20221013
  9. ATORVASTATIN CALCIUM [Concomitant]
     Active Substance: ATORVASTATIN CALCIUM
     Route: 048
     Dates: start: 20221013
  10. MINERALS\VITAMINS [Concomitant]
     Active Substance: MINERALS\VITAMINS
     Route: 048
     Dates: start: 20221018
  11. CETIRIZINE HCL [Concomitant]
     Active Substance: CETIRIZINE HYDROCHLORIDE
     Route: 048
     Dates: start: 20221013
  12. DOCUSATE SODIUM [Concomitant]
     Active Substance: DOCUSATE SODIUM
     Route: 048
     Dates: start: 20221013, end: 20221018
  13. DOXYCYCLINE HYCLATE [Concomitant]
     Active Substance: DOXYCYCLINE HYCLATE
     Route: 048
     Dates: start: 20221013, end: 20221018
  14. DULCOLAX STOOL SOFTENER [Concomitant]
     Active Substance: DOCUSATE SODIUM
     Route: 048
     Dates: start: 20221018
  15. FAMOTIDINE [Concomitant]
     Active Substance: FAMOTIDINE
     Route: 048
     Dates: start: 20221013, end: 20221018
  16. FLUTICASONE PROPIONATE [Concomitant]
     Active Substance: FLUTICASONE PROPIONATE
     Route: 045
     Dates: start: 20221013, end: 20221018
  17. GABAPENTIN [Concomitant]
     Active Substance: GABAPENTIN
     Route: 048
     Dates: start: 20221013
  18. LANSOPRAZOLE [Concomitant]
     Active Substance: LANSOPRAZOLE
     Route: 048
     Dates: start: 20221013
  19. OMEGA-3-ACID ETHYL ESTER [Concomitant]
     Active Substance: OMEGA-3-ACID ETHYL ESTERS
     Route: 048
     Dates: start: 20221013
  20. RAMIPRIL [Concomitant]
     Active Substance: RAMIPRIL
     Route: 048
     Dates: start: 20221013
  21. LINAGLIPTIN [Concomitant]
     Active Substance: LINAGLIPTIN
     Route: 048
     Dates: start: 20221018
  22. TRILEPTAL [Concomitant]
     Active Substance: OXCARBAZEPINE
     Route: 048
     Dates: start: 20221018

REACTIONS (2)
  - Nausea [Recovered/Resolved]
  - Fatigue [Recovered/Resolved]
